FAERS Safety Report 12188333 (Version 1)
Quarter: 2016Q1

REPORT INFORMATION
  Report Type: Report from Study
  Country: None (occurrence: ES)
  Receive Date: 20160317
  Receipt Date: 20160317
  Transmission Date: 20160526
  Serious: Yes (Hospitalization)
  Sender: FDA-Public Use
  Company Number: ES-MEDAC PHARMA, INC.-1049261

PATIENT
  Age: 68 Year
  Sex: Female

DRUGS (6)
  1. ESOMEPRAZOLE [Concomitant]
     Active Substance: ESOMEPRAZOLE
     Route: 048
  2. PAROXETINE [Concomitant]
     Active Substance: PAROXETINE\PAROXETINE HYDROCHLORIDE
     Route: 048
  3. LORMETAZEPAM [Concomitant]
     Active Substance: LORMETAZEPAM
     Route: 048
  4. PREDNISONE. [Concomitant]
     Active Substance: PREDNISONE
     Route: 048
  5. METOJECT [Suspect]
     Active Substance: METHOTREXATE SODIUM
     Indication: RHEUMATOID ARTHRITIS
     Route: 030
  6. LOSARTAN POTASSIUM. [Suspect]
     Active Substance: LOSARTAN POTASSIUM
     Route: 048

REACTIONS (1)
  - Pancreatitis [Recovered/Resolved]

NARRATIVE: CASE EVENT DATE: 20151112
